FAERS Safety Report 26148336 (Version 1)
Quarter: 2025Q4

REPORT INFORMATION
  Report Type: Spontaneous
  Country: US (occurrence: US)
  Receive Date: 20251212
  Receipt Date: 20251212
  Transmission Date: 20260118
  Serious: Yes (Hospitalization, Other)
  Sender: BAXTER
  Company Number: US-BAXTER-2025BAX025509

PATIENT
  Age: 13 Year
  Sex: Male

DRUGS (2)
  1. CEFTRIAXONE [Suspect]
     Active Substance: CEFTRIAXONE
     Dosage: UNK
     Route: 065
  2. METRONIDAZOLE [Concomitant]
     Active Substance: METRONIDAZOLE
     Dosage: UNK
     Route: 065

REACTIONS (14)
  - Pancreatitis necrotising [Unknown]
  - Pancreatic pseudocyst [Unknown]
  - Splenic vein thrombosis [Unknown]
  - Hyperglycaemia [Unknown]
  - Blood insulin decreased [Unknown]
  - Insulin C-peptide decreased [Unknown]
  - Pancreatitis acute [Unknown]
  - Cholelithiasis [Unknown]
  - Abdominal pain [Not Recovered/Not Resolved]
  - Vomiting [Unknown]
  - Lipase increased [Unknown]
  - Amylase increased [Unknown]
  - Tachycardia [Unknown]
  - Pyrexia [Unknown]
